FAERS Safety Report 25041000 (Version 1)
Quarter: 2025Q1

REPORT INFORMATION
  Report Type: Spontaneous
  Country: CA (occurrence: CA)
  Receive Date: 20250305
  Receipt Date: 20250305
  Transmission Date: 20250409
  Serious: Yes (Hospitalization)
  Sender: ROCHE
  Company Number: CA-002147023-NVSC2025CA033272

PATIENT
  Age: 40 Year
  Sex: Female
  Weight: 52 kg

DRUGS (45)
  1. OMALIZUMAB [Suspect]
     Active Substance: OMALIZUMAB
     Indication: Asthma
     Route: 050
  2. OMALIZUMAB [Suspect]
     Active Substance: OMALIZUMAB
     Route: 050
  3. OMALIZUMAB [Suspect]
     Active Substance: OMALIZUMAB
     Route: 050
  4. OMALIZUMAB [Suspect]
     Active Substance: OMALIZUMAB
     Route: 050
  5. OMALIZUMAB [Suspect]
     Active Substance: OMALIZUMAB
     Route: 050
  6. OMALIZUMAB [Suspect]
     Active Substance: OMALIZUMAB
     Route: 050
  7. OMALIZUMAB [Suspect]
     Active Substance: OMALIZUMAB
     Route: 050
  8. OMALIZUMAB [Suspect]
     Active Substance: OMALIZUMAB
     Route: 050
  9. OMALIZUMAB [Suspect]
     Active Substance: OMALIZUMAB
     Route: 050
  10. OMALIZUMAB [Suspect]
     Active Substance: OMALIZUMAB
     Route: 050
  11. OMALIZUMAB [Suspect]
     Active Substance: OMALIZUMAB
     Route: 050
  12. OMALIZUMAB [Suspect]
     Active Substance: OMALIZUMAB
     Route: 050
  13. OMALIZUMAB [Suspect]
     Active Substance: OMALIZUMAB
     Route: 050
  14. OMALIZUMAB [Suspect]
     Active Substance: OMALIZUMAB
     Route: 050
  15. OMALIZUMAB [Suspect]
     Active Substance: OMALIZUMAB
     Route: 050
  16. OMALIZUMAB [Suspect]
     Active Substance: OMALIZUMAB
     Route: 050
  17. OMALIZUMAB [Suspect]
     Active Substance: OMALIZUMAB
     Route: 050
  18. OMALIZUMAB [Suspect]
     Active Substance: OMALIZUMAB
     Route: 050
  19. OMALIZUMAB [Suspect]
     Active Substance: OMALIZUMAB
     Route: 050
  20. OMALIZUMAB [Suspect]
     Active Substance: OMALIZUMAB
     Route: 050
  21. OMALIZUMAB [Suspect]
     Active Substance: OMALIZUMAB
     Route: 050
  22. OMALIZUMAB [Suspect]
     Active Substance: OMALIZUMAB
     Route: 050
  23. OMALIZUMAB [Suspect]
     Active Substance: OMALIZUMAB
     Route: 050
  24. OMALIZUMAB [Suspect]
     Active Substance: OMALIZUMAB
     Route: 050
  25. OMALIZUMAB [Suspect]
     Active Substance: OMALIZUMAB
     Route: 050
  26. OMALIZUMAB [Suspect]
     Active Substance: OMALIZUMAB
     Route: 050
  27. OMALIZUMAB [Suspect]
     Active Substance: OMALIZUMAB
     Route: 050
  28. OMALIZUMAB [Suspect]
     Active Substance: OMALIZUMAB
     Route: 050
  29. OMALIZUMAB [Suspect]
     Active Substance: OMALIZUMAB
     Route: 050
  30. OMALIZUMAB [Suspect]
     Active Substance: OMALIZUMAB
     Route: 050
  31. OMALIZUMAB [Suspect]
     Active Substance: OMALIZUMAB
     Route: 050
  32. OMALIZUMAB [Suspect]
     Active Substance: OMALIZUMAB
     Route: 050
  33. OMALIZUMAB [Suspect]
     Active Substance: OMALIZUMAB
     Route: 050
  34. OMALIZUMAB [Suspect]
     Active Substance: OMALIZUMAB
     Route: 050
  35. OMALIZUMAB [Suspect]
     Active Substance: OMALIZUMAB
     Route: 050
  36. OMALIZUMAB [Suspect]
     Active Substance: OMALIZUMAB
     Route: 050
  37. OMALIZUMAB [Suspect]
     Active Substance: OMALIZUMAB
     Route: 050
  38. OMALIZUMAB [Suspect]
     Active Substance: OMALIZUMAB
     Route: 050
  39. AMOXICILLIN [Concomitant]
     Active Substance: AMOXICILLIN
     Indication: Product used for unknown indication
     Dosage: 1500 MG, QD (7 DAYS)
     Route: 065
  40. BUDESONIDE\FORMOTEROL FUMARATE [Concomitant]
     Active Substance: BUDESONIDE\FORMOTEROL FUMARATE
     Indication: Product used for unknown indication
     Route: 065
  41. CLOPIDOGREL [Concomitant]
     Active Substance: CLOPIDOGREL BISULFATE
     Indication: Product used for unknown indication
     Dosage: 75 MG, QD
     Route: 065
  42. COMBIVENT [Concomitant]
     Active Substance: ALBUTEROL SULFATE\IPRATROPIUM BROMIDE
     Indication: Product used for unknown indication
     Route: 065
  43. SINGULAIR [Concomitant]
     Active Substance: MONTELUKAST SODIUM
     Indication: Product used for unknown indication
     Route: 065
  44. VENTOLIN [Concomitant]
     Active Substance: ALBUTEROL SULFATE
     Indication: Product used for unknown indication
     Route: 065
  45. ZENHALE [Concomitant]
     Active Substance: FORMOTEROL FUMARATE\MOMETASONE FUROATE
     Indication: Product used for unknown indication
     Route: 065

REACTIONS (33)
  - Asthma [Not Recovered/Not Resolved]
  - Bronchitis [Not Recovered/Not Resolved]
  - Cellulite [Not Recovered/Not Resolved]
  - Chest discomfort [Not Recovered/Not Resolved]
  - Cough [Not Recovered/Not Resolved]
  - Dust allergy [Not Recovered/Not Resolved]
  - Exposure to allergen [Not Recovered/Not Resolved]
  - Forced expiratory volume decreased [Not Recovered/Not Resolved]
  - Haemorrhage [Not Recovered/Not Resolved]
  - Heart rate decreased [Not Recovered/Not Resolved]
  - Hypoaesthesia [Not Recovered/Not Resolved]
  - Influenza [Not Recovered/Not Resolved]
  - Lower respiratory tract congestion [Not Recovered/Not Resolved]
  - Lower respiratory tract infection [Not Recovered/Not Resolved]
  - Migraine [Not Recovered/Not Resolved]
  - Multiple allergies [Not Recovered/Not Resolved]
  - Nasal congestion [Not Recovered/Not Resolved]
  - Nasopharyngitis [Not Recovered/Not Resolved]
  - Oedema peripheral [Not Recovered/Not Resolved]
  - Pain in extremity [Not Recovered/Not Resolved]
  - Pneumonia [Not Recovered/Not Resolved]
  - Pulmonary congestion [Not Recovered/Not Resolved]
  - Rales [Not Recovered/Not Resolved]
  - Respiratory distress [Not Recovered/Not Resolved]
  - Rhinorrhoea [Not Recovered/Not Resolved]
  - Seasonal allergy [Not Recovered/Not Resolved]
  - Sinusitis [Not Recovered/Not Resolved]
  - Throat irritation [Not Recovered/Not Resolved]
  - Transient ischaemic attack [Not Recovered/Not Resolved]
  - Viral infection [Not Recovered/Not Resolved]
  - Weight decreased [Not Recovered/Not Resolved]
  - Weight increased [Not Recovered/Not Resolved]
  - Wheezing [Not Recovered/Not Resolved]
